FAERS Safety Report 13470186 (Version 1)
Quarter: 2017Q2

REPORT INFORMATION
  Report Type: Spontaneous
  Country: US (occurrence: US)
  Receive Date: 20170421
  Receipt Date: 20170421
  Transmission Date: 20170830
  Serious: Yes (Disabling)
  Sender: FDA-Public Use
  Company Number: None

PATIENT
  Age: 53 Year
  Sex: Male
  Weight: 65.25 kg

DRUGS (5)
  1. PHYLLIUM FIBER [Concomitant]
  2. LEVOFLOXACIN 500 MG TABLET [Suspect]
     Active Substance: LEVOFLOXACIN
     Indication: INFECTION PROPHYLAXIS
     Dosage: ?          QUANTITY:10 TABLET(S);?
     Route: 048
     Dates: start: 20150303, end: 20150309
  3. MULTIVITAMIN [Concomitant]
     Active Substance: VITAMINS
  4. NATUREMADE CHOLESTOFF [Concomitant]
  5. VITAMIN C [Suspect]
     Active Substance: ASCORBIC ACID

REACTIONS (3)
  - Plantar fasciitis [None]
  - Muscle spasms [None]
  - Musculoskeletal pain [None]

NARRATIVE: CASE EVENT DATE: 20150305
